FAERS Safety Report 9831175 (Version 1)
Quarter: 2014Q1

REPORT INFORMATION
  Report Type: Report from Study
  Country: US (occurrence: US)
  Receive Date: 20140121
  Receipt Date: 20140121
  Transmission Date: 20141002
  Serious: Yes (Death)
  Sender: FDA-Public Use
  Company Number: US-ROCHE-1334058

PATIENT
  Sex: Female

DRUGS (6)
  1. AVASTIN [Suspect]
     Indication: COLON CANCER
     Dosage: 285 MG PLACED IN 100ML SODIUM CHLORIDE 0.9%
     Route: 042
     Dates: start: 20111007
  2. GRANISETRON [Suspect]
     Indication: COLON CANCER
     Dosage: PER 24 HOURS
     Route: 062
     Dates: start: 20111216
  3. XELODA [Suspect]
     Indication: COLON CANCER
     Route: 065
  4. CATAPRES [Concomitant]
     Route: 048
     Dates: start: 20111216
  5. POTASSIUM CHLORIDE [Concomitant]
     Route: 048
     Dates: start: 20111216
  6. TYLENOL [Concomitant]
     Dosage: 16 DEC 2011
     Route: 048
     Dates: start: 20111007

REACTIONS (1)
  - Death [Fatal]
